FAERS Safety Report 8905450 (Version 1)
Quarter: 2012Q4

REPORT INFORMATION
  Report Type: 
  Country: SE (occurrence: SE)
  Receive Date: 20121109
  Receipt Date: 20121109
  Transmission Date: 20130627
  Serious: Yes (Hospitalization)
  Sender: FDA-Public Use
  Company Number: SE-PFIZER INC-2012276450

PATIENT
  Age: 34 Year
  Sex: Male
  Weight: 60.3 kg

DRUGS (10)
  1. GENOTROPIN [Suspect]
     Indication: GROWTH HORMONE DEFICIENCY
     Dosage: 0.5 mg, 1x/day,7 injections/week
     Route: 058
     Dates: start: 20060124
  2. LEVOTHYROXINE [Concomitant]
     Indication: TSH DECREASED
     Dosage: UNK
     Dates: start: 19860601
  3. LEVOTHYROXINE [Concomitant]
     Indication: PRIMARY HYPOTHYROIDISM
  4. FOLACIN [Concomitant]
     Indication: VITAMIN B COMPLEX DEFICIENCY
     Dosage: UNK
     Dates: start: 20020211
  5. NEXIUM [Concomitant]
     Indication: GASTRITIS
     Dosage: UNK
     Dates: start: 20020211
  6. CITALOPRAM [Concomitant]
     Indication: DEPRESSION
     Dosage: UNK
     Dates: start: 20060620
  7. LAMOTRIGINE [Concomitant]
     Indication: EPILEPSY
     Dosage: UNK
     Dates: start: 20060620
  8. LAMOTRIGINE [Concomitant]
     Indication: CONVULSIONS
  9. LAMOTRIGINE [Concomitant]
     Indication: SEIZURE
  10. ABILIFY [Concomitant]
     Indication: PSYCHOTIC DISORDER
     Dosage: UNK
     Dates: start: 20070501

REACTIONS (1)
  - Tendon disorder [Unknown]
